FAERS Safety Report 6017945-1 (Version None)
Quarter: 2008Q4

REPORT INFORMATION
  Report Type: 
  Country: None (occurrence: None)
  Receive Date: 20081223
  Receipt Date: 20081208
  Transmission Date: 20090506
  Serious: Yes (Hospitalization)
  Sender: FDA-Public Use
  Company Number: FR-JNJFOC-20081204885

PATIENT
  Sex: Female

DRUGS (18)
  1. TOPALGIC [Suspect]
     Indication: ANALGESIC THERAPY
     Route: 048
  2. PROZAC [Interacting]
     Indication: DEPRESSION
     Route: 048
  3. ACUPAN [Interacting]
     Indication: ANALGESIC THERAPY
     Route: 042
  4. AUGMENTIN '125' [Concomitant]
  5. ROCEPHIN [Concomitant]
  6. LEVOFLOXACIN [Concomitant]
  7. TRIFLUCAN [Concomitant]
  8. PERFALGAN [Concomitant]
  9. TARDYFERON [Concomitant]
  10. AUGMENTIN '125' [Concomitant]
  11. KARDEGIC [Concomitant]
  12. FOSAVANCE [Concomitant]
  13. ACETAMINOPHEN [Concomitant]
  14. INIPOMP [Concomitant]
  15. LOVENOX [Concomitant]
  16. CALCIUM [Concomitant]
  17. DEDROGYL [Concomitant]
  18. DILTIAZEM HCL [Concomitant]

REACTIONS (3)
  - CONFUSIONAL STATE [None]
  - DISTURBANCE IN ATTENTION [None]
  - DRUG INTERACTION [None]
